FAERS Safety Report 24765685 (Version 1)
Quarter: 2024Q4

REPORT INFORMATION
  Report Type: Spontaneous
  Country: US (occurrence: US)
  Receive Date: 20241223
  Receipt Date: 20241223
  Transmission Date: 20250114
  Serious: No
  Sender: ABBVIE
  Company Number: US-ABBVIE-6059817

PATIENT
  Age: 47 Year
  Sex: Male
  Weight: 81.646 kg

DRUGS (4)
  1. VRAYLAR [Suspect]
     Active Substance: CARIPRAZINE
     Indication: Schizophrenia
     Dosage: FORM STRENGTH 3 MG
     Route: 048
     Dates: start: 20241213
  2. VRAYLAR [Suspect]
     Active Substance: CARIPRAZINE
     Indication: Schizophrenia
     Dosage: FORM STRENGTH 1.5 MG
     Route: 048
     Dates: start: 20241212, end: 20241212
  3. MELATONIN [Concomitant]
     Active Substance: MELATONIN
     Indication: Seizure
  4. VIMPAT [Concomitant]
     Active Substance: LACOSAMIDE
     Indication: Seizure

REACTIONS (18)
  - Gait disturbance [Recovering/Resolving]
  - Hypothermia [Recovered/Resolved]
  - Mood swings [Recovering/Resolving]
  - Neck pain [Recovered/Resolved]
  - Dyspnoea [Recovered/Resolved]
  - Piloerection [Recovered/Resolved]
  - Headache [Recovered/Resolved]
  - Chills [Recovered/Resolved]
  - Irritability [Recovering/Resolving]
  - Movement disorder [Recovered/Resolved]
  - Depression [Recovering/Resolving]
  - Nausea [Recovered/Resolved]
  - Bradykinesia [Recovering/Resolving]
  - Slow speech [Recovering/Resolving]
  - Panic attack [Recovered/Resolved]
  - Tremor [Recovering/Resolving]
  - Cognitive disorder [Recovering/Resolving]
  - Vomiting [Recovered/Resolved]

NARRATIVE: CASE EVENT DATE: 20241212
